FAERS Safety Report 6543131-2 (Version None)
Quarter: 2010Q1

REPORT INFORMATION
  Report Type: 
  Country: None (occurrence: None)
  Receive Date: 20100120
  Receipt Date: 20100118
  Transmission Date: 20100710
  Serious: Yes (Death, Hospitalization)
  Sender: FDA-Public Use
  Company Number: PHEH2009US15047

PATIENT
  Sex: Male

DRUGS (5)
  1. EXJADE [Suspect]
     Indication: CHRONIC LYMPHOCYTIC LEUKAEMIA
     Dosage: 2000 MG, QD
     Route: 048
     Dates: start: 20090626, end: 20090913
  2. M.V.I. [Concomitant]
     Dosage: UNK
     Route: 048
  3. PRILOSEC [Concomitant]
     Dosage: 20 MG, BID
     Route: 048
  4. ASPIRIN [Concomitant]
     Dosage: 81 MG, TIW
     Route: 048
  5. BENEFIBER [Concomitant]
     Dosage: PRN USUALLY QD
     Route: 048

REACTIONS (1)
  - DEATH [None]
